FAERS Safety Report 4301409-7 (Version None)
Quarter: 2004Q1

REPORT INFORMATION
  Report Type: 
  Country: None (occurrence: None)
  Receive Date: 20040220
  Receipt Date: 20040220
  Transmission Date: 20041129
  Serious: Yes (Other)
  Sender: FDA-Public Use
  Company Number: None

PATIENT
  Age: 4 Year
  Sex: Female
  Weight: 17 kg

DRUGS (1)
  1. NEXIUM [Suspect]
     Dosage: 20 MG BID
     Dates: start: 20031001, end: 20040201

REACTIONS (1)
  - MOUTH ULCERATION [None]
